FAERS Safety Report 21987738 (Version 2)
Quarter: 2023Q1

REPORT INFORMATION
  Report Type: Spontaneous
  Country: US (occurrence: US)
  Receive Date: 20230214
  Receipt Date: 20230216
  Transmission Date: 20230418
  Serious: No
  Sender: FDA-Public Use
  Company Number: US-SANOFI-01485036

PATIENT
  Age: 54 Year
  Sex: Male

DRUGS (1)
  1. LANTUS SOLOSTAR [Suspect]
     Active Substance: INSULIN GLARGINE
     Indication: Diabetes mellitus
     Dosage: 55 U, QD

REACTIONS (5)
  - Insomnia [Unknown]
  - Blood glucose increased [Unknown]
  - Device issue [Unknown]
  - Device leakage [Unknown]
  - Incorrect dose administered [Unknown]
